FAERS Safety Report 4538697-8 (Version None)
Quarter: 2004Q4

REPORT INFORMATION
  Report Type: 
  Country: None (occurrence: None)
  Receive Date: 20041222
  Receipt Date: 20041203
  Transmission Date: 20050328
  Serious: Yes (Hospitalization)
  Sender: FDA-Public Use
  Company Number: PAR COMPLAINT # 04-318

PATIENT
  Age: 6 Month
  Sex: Male

DRUGS (2)
  1. AVELOX [Suspect]
  2. IBUPROFEN [Suspect]
     Indication: EAR INFECTION

REACTIONS (1)
  - CONVULSION [None]
